FAERS Safety Report 11290855 (Version 1)
Quarter: 2015Q3

REPORT INFORMATION
  Report Type: Spontaneous
  Country: US (occurrence: US)
  Receive Date: 20150722
  Receipt Date: 20150722
  Transmission Date: 20151125
  Serious: Yes (Hospitalization)
  Sender: FDA-Public Use
  Company Number: US-UNITED THERAPEUTICS-UNT-2015-003200

PATIENT
  Age: 34 Year
  Sex: Male
  Weight: 86.17 kg

DRUGS (1)
  1. REMODULIN [Suspect]
     Active Substance: TREPROSTINIL
     Indication: PULMONARY HYPERTENSION
     Dosage: 0.048 ?G/KG/MIN, CONTINUING
     Route: 041
     Dates: start: 20110513

REACTIONS (5)
  - Injection site pain [Unknown]
  - Injection site haemorrhage [Unknown]
  - Medical device complication [Unknown]
  - Injection site discharge [Unknown]
  - Device related infection [Unknown]

NARRATIVE: CASE EVENT DATE: 20150319
